FAERS Safety Report 10146026 (Version 1)
Quarter: 2014Q2

REPORT INFORMATION
  Report Type: Report from Study
  Country: US (occurrence: US)
  Receive Date: 20140501
  Receipt Date: 20140501
  Transmission Date: 20141212
  Serious: Yes (Hospitalization)
  Sender: FDA-Public Use
  Company Number: PHEH2014US008603

PATIENT
  Sex: Female
  Weight: 53.61 kg

DRUGS (1)
  1. TOBI PODHALER [Suspect]
     Indication: CYSTIC FIBROSIS
     Dosage: 112 MG, BID
     Route: 055

REACTIONS (4)
  - Rhinovirus infection [Unknown]
  - Immune system disorder [Unknown]
  - Malaise [Unknown]
  - Weight decreased [Recovering/Resolving]
